FAERS Safety Report 6398490-0 (Version None)
Quarter: 2009Q4

REPORT INFORMATION
  Report Type: 
  Country: None (occurrence: None)
  Receive Date: 20091013
  Receipt Date: 20091008
  Transmission Date: 20100525
  Serious: Yes (Other)
  Sender: FDA-Public Use
  Company Number: B0597182A

PATIENT
  Age: 11 Year
  Sex: Male
  Weight: 56.6 kg

DRUGS (3)
  1. SERETIDE [Suspect]
     Indication: ASTHMA
     Dosage: 100MCG TWICE PER DAY
     Route: 055
  2. ALBUTEROL [Concomitant]
  3. CETIRIZINE HCL [Concomitant]

REACTIONS (1)
  - ADRENAL SUPPRESSION [None]
